FAERS Safety Report 9073966 (Version 1)
Quarter: 2013Q1

REPORT INFORMATION
  Report Type: Report from Study
  Country: US (occurrence: US)
  Receive Date: 20130129
  Receipt Date: 20130129
  Transmission Date: 20140127
  Serious: Yes (Hospitalization)
  Sender: FDA-Public Use
  Company Number: US-ABBOTT-12P-163-0918098-00

PATIENT
  Age: 20 Year
  Sex: Male
  Weight: 77.18 kg

DRUGS (3)
  1. HUMIRA 40 MG/0.8 ML PEN [Suspect]
     Indication: CROHN^S DISEASE
     Route: 058
     Dates: start: 20120210
  2. HUMIRA 40 MG/0.8 ML PEN [Suspect]
     Indication: COLITIS ULCERATIVE
  3. FOCALIN [Concomitant]
     Indication: PRODUCT USED FOR UNKNOWN INDICATION

REACTIONS (9)
  - Crohn^s disease [Recovering/Resolving]
  - Drug ineffective [Unknown]
  - Colitis [Recovering/Resolving]
  - Haematochezia [Recovering/Resolving]
  - Abdominal pain [Recovering/Resolving]
  - Gastrointestinal infection [Recovering/Resolving]
  - Pyrexia [Not Recovered/Not Resolved]
  - Hyperhidrosis [Not Recovered/Not Resolved]
  - Confusional state [Not Recovered/Not Resolved]
